FAERS Safety Report 6335352-9 (Version None)
Quarter: 2009Q3

REPORT INFORMATION
  Report Type: 
  Country: None (occurrence: None)
  Receive Date: 20090831
  Receipt Date: 20090819
  Transmission Date: 20100115
  Serious: Yes (Other)
  Sender: FDA-Public Use
  Company Number: US-ELI_LILLY_AND_COMPANY-US200907004893

PATIENT
  Age: 85 Year
  Sex: Female

DRUGS (1)
  1. CYMBALTA [Suspect]
     Indication: NEURALGIA
     Dates: start: 20090301

REACTIONS (2)
  - HYDROCEPHALUS [None]
  - OFF LABEL USE [None]
